FAERS Safety Report 9796614 (Version 1)
Quarter: 2014Q1

REPORT INFORMATION
  Report Type: Spontaneous
  Country: US (occurrence: US)
  Receive Date: 20140103
  Receipt Date: 20140103
  Transmission Date: 20141002
  Serious: Yes (Death)
  Sender: FDA-Public Use
  Company Number: US-UCBSA-107581

PATIENT
  Age: 33 Year
  Sex: Male

DRUGS (5)
  1. ALPRAZOLAM [Suspect]
     Dosage: PARENTERAL/UNKNOWN
  2. HEROIN [Suspect]
     Dosage: PARENTERAL/UNKNOWN
  3. COCAINE [Suspect]
     Dosage: PARENTERAL/UNKNOWN
  4. DEXTROMETHORPHAN [Suspect]
     Dosage: PARENTERAL/UNKNOWN
  5. QUININE [Suspect]
     Dosage: PARENTERAL/UNKNOWN

REACTIONS (1)
  - Toxicity to various agents [Fatal]
